FAERS Safety Report 4644790-1 (Version None)
Quarter: 2005Q2

REPORT INFORMATION
  Report Type: 
  Country: None (occurrence: None)
  Receive Date: 20050426
  Receipt Date: 20050418
  Transmission Date: 20051028
  Serious: Yes (Hospitalization)
  Sender: FDA-Public Use
  Company Number: US-BOEHRINGER INGELHEIM PHARMACEUTICALS, INC.-2005-BP-06445RO

PATIENT
  Age: 2 Year
  Sex: Male

DRUGS (1)
  1. CALCITRIOL [Suspect]
     Dosage: 2.3 MCG X 1 DOSE
     Route: 048

REACTIONS (1)
  - ACCIDENTAL OVERDOSE [None]
